FAERS Safety Report 6636773-7 (Version None)
Quarter: 2010Q1

REPORT INFORMATION
  Report Type: 
  Country: None (occurrence: None)
  Receive Date: 20100316
  Receipt Date: 20100308
  Transmission Date: 20100710
  Serious: Yes (Other)
  Sender: FDA-Public Use
  Company Number: US-BAYER-201012828BCC

PATIENT
  Age: 73 Year
  Sex: Male

DRUGS (3)
  1. ASPIRIN [Suspect]
     Indication: DRUG USE FOR UNKNOWN INDICATION
     Route: 065
  2. ASPIRIN [Suspect]
     Dosage: UNIT DOSE: 1 DF
     Route: 065
  3. PLAVIX [Suspect]
     Indication: STENT PLACEMENT
     Dosage: TOTAL DAILY DOSE: 75 MG  UNIT DOSE: 75 MG
     Route: 048
     Dates: start: 20090105, end: 20100101

REACTIONS (7)
  - DRUG HYPERSENSITIVITY [None]
  - GASTRIC HAEMORRHAGE [None]
  - GINGIVAL BLEEDING [None]
  - HAIR DISORDER [None]
  - PAIN IN EXTREMITY [None]
  - PILOERECTION [None]
  - SKIN HAEMORRHAGE [None]
